FAERS Safety Report 23591414 (Version 4)
Quarter: 2024Q2

REPORT INFORMATION
  Report Type: Spontaneous
  Country: SK (occurrence: SK)
  Receive Date: 20240304
  Receipt Date: 20240416
  Transmission Date: 20240716
  Serious: Yes (Life-Threatening, Hospitalization, Other)
  Sender: FDA-Public Use
  Company Number: SK-GLENMARK PHARMACEUTICALS-2024GMK089009

PATIENT
  Age: 62 Year
  Sex: Female

DRUGS (7)
  1. OLANZAPINE [Suspect]
     Active Substance: OLANZAPINE
     Indication: Delusional disorder, unspecified type
     Dosage: 15 MILLIGRAM, QD
     Route: 065
  2. ARIPIPRAZOLE [Suspect]
     Active Substance: ARIPIPRAZOLE
     Indication: Delusional disorder, unspecified type
     Dosage: 20 MILLIGRAM, QD
     Route: 065
  3. CINOLAZEPAM [Concomitant]
     Active Substance: CINOLAZEPAM
     Indication: Dyssomnia
     Dosage: UNK
     Route: 065
  4. DIAZEPAM [Concomitant]
     Active Substance: DIAZEPAM
     Dosage: 10 MILLIGRAM
     Route: 042
  5. DIAZEPAM [Concomitant]
     Active Substance: DIAZEPAM
     Dosage: 30 MILLIGRAM, QD
     Route: 042
  6. HALOPERIDOL [Concomitant]
     Active Substance: HALOPERIDOL
     Dosage: UNK
     Route: 065
  7. MIRTAZAPINE [Concomitant]
     Active Substance: MIRTAZAPINE
     Indication: Dyssomnia
     Dosage: UNK
     Route: 065

REACTIONS (5)
  - Deep vein thrombosis [Unknown]
  - Pulmonary embolism [Recovered/Resolved]
  - Condition aggravated [Recovering/Resolving]
  - Delusion [Recovering/Resolving]
  - Catatonia [Unknown]
